FAERS Safety Report 23594320 (Version 1)
Quarter: 2024Q1

REPORT INFORMATION
  Report Type: Spontaneous
  Country: FR (occurrence: FR)
  Receive Date: 20240305
  Receipt Date: 20240305
  Transmission Date: 20240410
  Serious: Yes (Life-Threatening, Other)
  Sender: FDA-Public Use
  Company Number: FR-AFSSAPS-AN2024000209

PATIENT
  Age: 83 Year
  Sex: Male

DRUGS (4)
  1. PREDNISONE [Interacting]
     Active Substance: PREDNISONE
     Indication: Follicular lymphoma stage IV
     Dosage: 40 MILLIGRAM, ONCE A DAY
     Route: 048
     Dates: start: 20240117, end: 20240121
  2. VINCRISTINE [Interacting]
     Active Substance: VINCRISTINE
     Indication: Follicular lymphoma stage IV
     Dosage: 2 MILLIGRAM
     Route: 042
     Dates: start: 20240117, end: 20240117
  3. RITUXIMAB [Interacting]
     Active Substance: RITUXIMAB
     Indication: Follicular lymphoma stage IV
     Dosage: 1400 MILLIGRAM
     Route: 058
     Dates: start: 20240117, end: 20240117
  4. CYCLOPHOSPHAMIDE [Interacting]
     Active Substance: CYCLOPHOSPHAMIDE
     Indication: Follicular lymphoma stage IV
     Dosage: 1250 MILLIGRAM
     Route: 042
     Dates: start: 20240117, end: 20240117

REACTIONS (2)
  - Sepsis [Recovered/Resolved]
  - Drug interaction [Recovered/Resolved]

NARRATIVE: CASE EVENT DATE: 20240124
